FAERS Safety Report 6295843-6 (Version None)
Quarter: 2009Q3

REPORT INFORMATION
  Report Type: 
  Country: None (occurrence: None)
  Receive Date: 20090804
  Receipt Date: 20090720
  Transmission Date: 20100115
  Serious: Yes (Other)
  Sender: FDA-Public Use
  Company Number: JP-ROCHE-645357

PATIENT
  Age: 65 Year
  Sex: Male

DRUGS (10)
  1. TRETINOIN [Suspect]
     Dosage: MAINTENANCE THERAPY; GIVEN ON DAYS 1-14
     Route: 048
  2. TRETINOIN [Suspect]
     Dosage: INDUCTION THERAPY; 1 COURSE
     Route: 048
  3. MERCAPTOPURINE [Suspect]
     Dosage: MAINTENANCE THERAPY; GIVEN ON DAYS 29-56
     Route: 048
  4. METHOTREXATE [Suspect]
     Dosage: MAINTENANCE THERAPY; GIVEN ON DAYS 29, 36, 43, 50 (EVERY 3 MONTHS)
     Route: 048
  5. CYTARABINE [Suspect]
     Dosage: INDUCTION THERAPY
     Route: 065
  6. CYTARABINE [Suspect]
     Dosage: CONSOLIDATION THERAPY 1ST, 2ND COURSE: 200 MG/M2 DAYS 1-5; 3RD COURSE: 140 MG/M2 DAYS 1-5
     Route: 065
  7. IDARUBICIN HCL [Suspect]
     Dosage: INDUCTION THERAPY
     Route: 065
  8. IDARUBICIN HCL [Suspect]
     Dosage: AS PART OF 3RD COURSE OF CONSOLIDATION THERAPY: GIVEN ON DAYS 1-3
     Route: 065
  9. MITOXANTRONE [Concomitant]
     Dosage: GIVEN AS PART OF FIRST COURSE OF CONSOLIDATION THERAPY ON DAYS 1-3
  10. DAUNORUBICIN HCL [Concomitant]
     Dosage: GIVEN AS PART OF SECOND COURSE OF CONSOLIDATION THERAPY ON DAYS 1-3

REACTIONS (4)
  - ASPARTATE AMINOTRANSFERASE ABNORMAL [None]
  - BRONCHOPULMONARY ASPERGILLOSIS [None]
  - DIARRHOEA [None]
  - HEPATIC FUNCTION ABNORMAL [None]
